FAERS Safety Report 15659036 (Version 1)
Quarter: 2018Q4

REPORT INFORMATION
  Report Type: Spontaneous
  Country: US (occurrence: US)
  Receive Date: 20181127
  Receipt Date: 20181127
  Transmission Date: 20190205
  Serious: Yes (Other)
  Sender: FDA-Public Use
  Company Number: US-SA-2018SA236978

PATIENT
  Age: 81 Year
  Sex: Female
  Weight: 68.03 kg

DRUGS (2)
  1. PRALUENT [Suspect]
     Active Substance: ALIROCUMAB
     Indication: CARDIOVASCULAR EVENT PROPHYLAXIS
     Dosage: 75 MG, QOW
     Dates: start: 20180816
  2. PRALUENT [Suspect]
     Active Substance: ALIROCUMAB
     Dosage: 75 MG , QOW

REACTIONS (7)
  - Blood glucose increased [Unknown]
  - Mass [Unknown]
  - Basal cell carcinoma [Unknown]
  - Blood pressure increased [Unknown]
  - Injury [Recovered/Resolved]
  - Skin haemorrhage [Unknown]
  - Coagulopathy [Unknown]

NARRATIVE: CASE EVENT DATE: 201810
